FAERS Safety Report 24935479 (Version 2)
Quarter: 2025Q3

REPORT INFORMATION
  Report Type: Report from Study
  Country: US (occurrence: US)
  Receive Date: 20250206
  Receipt Date: 20250711
  Transmission Date: 20251021
  Serious: Yes (Hospitalization)
  Sender: SUNOVION
  Company Number: US-SMPA-2025SPA000789AA

PATIENT

DRUGS (8)
  1. RETHYMIC [Suspect]
     Active Substance: ALLOGENIC THYMOCYTE-DEPLETED THYMUS TISSUE-AGDC
     Indication: DiGeorge^s syndrome
     Route: 050
     Dates: start: 20240124, end: 20240124
  2. METHYLPREDNISOLONE [Concomitant]
     Active Substance: METHYLPREDNISOLONE
     Dosage: 16.875 MG, SINGLE
     Route: 042
     Dates: start: 20240118, end: 20240118
  3. METHYLPREDNISOLONE [Concomitant]
     Active Substance: METHYLPREDNISOLONE
     Dosage: 4.2 MG, QID
     Route: 042
     Dates: start: 20240118, end: 20240119
  4. METHYLPREDNISOLONE [Concomitant]
     Active Substance: METHYLPREDNISOLONE
     Dosage: 3 MG, QID
     Route: 042
     Dates: start: 20240119, end: 20240120
  5. CYCLOSPORINE [Concomitant]
     Active Substance: CYCLOSPORINE
     Indication: Immunosuppressant drug therapy
     Dosage: UNK, BID (EVERY 12 HOURS)
     Route: 048
     Dates: start: 20240116
  6. MYCOPHENOLATE MOFETIL [Concomitant]
     Active Substance: MYCOPHENOLATE MOFETIL
     Indication: Immunosuppressant drug therapy
     Dosage: 130 MG, TID
     Route: 048
     Dates: start: 20240304
  7. LAPINE T-LYMPHOCYTE IMMUNE GLOBULIN [Concomitant]
     Active Substance: LAPINE T-LYMPHOCYTE IMMUNE GLOBULIN
     Dosage: 17 MG, QD
     Route: 042
     Dates: start: 20240118, end: 20240120
  8. Immunoglobulin [Concomitant]
     Indication: Immunoglobulin therapy
     Route: 065
     Dates: start: 202308

REACTIONS (2)
  - Respiratory syncytial virus infection [Recovered/Resolved]
  - Dehydration [Unknown]

NARRATIVE: CASE EVENT DATE: 20240208
